FAERS Safety Report 7129444-4 (Version None)
Quarter: 2010Q4

REPORT INFORMATION
  Report Type: 
  Country: None (occurrence: None)
  Receive Date: 20101130
  Receipt Date: 20101115
  Transmission Date: 20110411
  Serious: Yes (Congenital Anomaly, Other)
  Sender: FDA-Public Use
  Company Number: US-ELI_LILLY_AND_COMPANY-US201011004238

PATIENT
  Sex: Female

DRUGS (4)
  1. PROZAC [Suspect]
     Indication: DEPRESSION
     Dosage: 20 MG, DAILY (1/D)
     Route: 064
     Dates: start: 19980601, end: 20000201
  2. ANTIHYPERTENSIVES [Concomitant]
     Indication: HYPERTENSION
     Route: 064
     Dates: end: 20000201
  3. VITAMINS [Concomitant]
     Indication: VITAMIN SUPPLEMENTATION
     Route: 064
  4. MINERALS NOS [Concomitant]
     Indication: MINERAL SUPPLEMENTATION
     Route: 064

REACTIONS (6)
  - CARDIAC ANEURYSM [None]
  - DRUG EXPOSURE DURING PREGNANCY [None]
  - FALLOT'S TETRALOGY [None]
  - MOSAICISM [None]
  - OXYGEN SATURATION ABNORMAL [None]
  - PULMONARY ARTERY ATRESIA [None]
